FAERS Safety Report 8074960-4 (Version None)
Quarter: 2012Q1

REPORT INFORMATION
  Report Type: 
  Country: None (occurrence: None)
  Receive Date: 20120127
  Receipt Date: 20120117
  Transmission Date: 20120608
  Serious: Yes (Hospitalization)
  Sender: FDA-Public Use
  Company Number: US-BIOGENIDEC-2012BI000963

PATIENT
  Age: 50 Year
  Sex: Female

DRUGS (18)
  1. TYSABRI [Suspect]
     Indication: MULTIPLE SCLEROSIS
     Route: 042
     Dates: start: 20071016, end: 20110815
  2. PROTONIX [Concomitant]
  3. NEURONTIN [Concomitant]
  4. AMITRIPTYLINE HCL [Concomitant]
  5. VITAMIN D [Concomitant]
  6. SENOKOT [Concomitant]
     Route: 048
  7. VITAMIN B-12 [Concomitant]
  8. MIRALAX [Concomitant]
  9. AMITRIPTYLINE HCL [Concomitant]
  10. FERROUS SULFATE TAB [Concomitant]
  11. DULCOLAX [Concomitant]
  12. COLACE [Concomitant]
  13. ACETAMINOPHEN [Concomitant]
  14. BACLOFEN [Concomitant]
  15. DIAZEPAM [Concomitant]
  16. BACLOFEN [Concomitant]
  17. BENADRYL [Concomitant]
  18. PROVIGIL [Concomitant]

REACTIONS (5)
  - MULTIPLE SCLEROSIS RELAPSE [None]
  - PROGRESSIVE MULTIFOCAL LEUKOENCEPHALOPATHY [None]
  - URINARY TRACT INFECTION ENTEROCOCCAL [None]
  - PAIN [None]
  - INFLUENZA [None]
